FAERS Safety Report 4965668-X (Version None)
Quarter: 2006Q2

REPORT INFORMATION
  Report Type: 
  Country: None (occurrence: None)
  Receive Date: 20060407
  Receipt Date: 20060203
  Transmission Date: 20061013
  Serious: Yes (Hospitalization)
  Sender: FDA-Public Use
  Company Number: JP-ABBOTT-06P-087-0324274-00

PATIENT
  Sex: Male

DRUGS (14)
  1. KALETRA [Suspect]
     Indication: HIV INFECTION
     Route: 048
     Dates: start: 20040630
  2. LAMIVUDINE AND ZIDOVUDINE [Suspect]
     Indication: HIV INFECTION
     Route: 048
     Dates: start: 20040630, end: 20040727
  3. TENOFOVIR [Suspect]
     Indication: HIV INFECTION
     Route: 048
     Dates: start: 20040630, end: 20041019
  4. TENOFOVIR [Suspect]
     Route: 048
     Dates: start: 20041020, end: 20041216
  5. ZIDOVUDINE [Suspect]
     Indication: HIV INFECTION
     Route: 048
     Dates: start: 20040728, end: 20040805
  6. LAMIVUDINE [Suspect]
     Indication: HIV INFECTION
     Route: 048
     Dates: start: 20040728
  7. DIDANOSINE [Concomitant]
     Indication: HIV INFECTION
     Route: 048
     Dates: start: 20040528, end: 20040629
  8. ABACAVIR [Concomitant]
     Indication: HIV INFECTION
     Route: 048
     Dates: start: 20040528, end: 20040629
  9. ABACAVIR [Concomitant]
     Route: 048
     Dates: start: 20041217
  10. EFAVIRENZ [Concomitant]
     Indication: HIV INFECTION
     Route: 048
     Dates: start: 20040528, end: 20040629
  11. CLOBAZAM [Concomitant]
     Indication: CONVULSION
     Dates: start: 20040528, end: 20040716
  12. ZONISAMIDE [Concomitant]
     Indication: CONVULSION
     Dosage: 100MG IN THE MORNING; 200MG AT NIGHT
     Dates: start: 20040528
  13. ROXATIDINE ACETATE HCL [Concomitant]
     Indication: GASTRITIS
     Route: 048
     Dates: start: 20040804, end: 20041222
  14. BACTRIM [Concomitant]
     Indication: ANTIBIOTIC PROPHYLAXIS
     Dates: start: 20040618, end: 20050317

REACTIONS (4)
  - GASTRITIS [None]
  - PROSTATIC ABSCESS [None]
  - PYELONEPHRITIS [None]
  - RENAL IMPAIRMENT [None]
